FAERS Safety Report 11043253 (Version 1)
Quarter: 2015Q2

REPORT INFORMATION
  Report Type: Spontaneous
  Country: FR (occurrence: FR)
  Receive Date: 20150417
  Receipt Date: 20150417
  Transmission Date: 20150821
  Serious: Yes (Death)
  Sender: FDA-Public Use
  Company Number: FR-ROCHE-1563937

PATIENT
  Age: 58 Year
  Sex: Female

DRUGS (24)
  1. CELLCEPT [Suspect]
     Active Substance: MYCOPHENOLATE MOFETIL\MYCOPHENOLATE MOFETIL HYDROCHLORIDE
     Indication: KIDNEY TRANSPLANT REJECTION
  2. BACTRIM [Suspect]
     Active Substance: SULFAMETHOXAZOLE\TRIMETHOPRIM
     Indication: PRODUCT USED FOR UNKNOWN INDICATION
     Route: 048
     Dates: start: 20150218, end: 20150220
  3. CORDARONE [Suspect]
     Active Substance: AMIODARONE HYDROCHLORIDE
     Indication: ATRIAL FIBRILLATION
     Route: 048
     Dates: start: 20150220, end: 20150220
  4. LASILIX SPECIAL [Suspect]
     Active Substance: FUROSEMIDE
     Indication: CHRONIC KIDNEY DISEASE
     Route: 048
     Dates: start: 20150220, end: 20150221
  5. AMOXICILLIN/CLAVULANIC ACID [Suspect]
     Active Substance: AMOXICILLIN\CLAVULANIC ACID
     Indication: PRODUCT USED FOR UNKNOWN INDICATION
     Dosage: 1 G/ 125 MG SANDOZ INJECTABLE
     Route: 065
     Dates: start: 20150219, end: 20150224
  6. PARACETAMOL [Suspect]
     Active Substance: ACETAMINOPHEN
     Indication: PAIN
     Dosage: 1G FROM 17 TO 19-FEB AND 3G FROM 20 TO 21-FEB-2015
     Route: 042
     Dates: start: 20150217, end: 20150219
  7. INEXIUM [Suspect]
     Active Substance: ESOMEPRAZOLE
     Indication: GASTRIC ULCER
     Route: 048
     Dates: start: 20150216, end: 20150221
  8. GLUCOR [Concomitant]
     Active Substance: ACARBOSE
     Route: 065
  9. DRIPTANE [Suspect]
     Active Substance: OXYBUTYNIN
     Indication: PRODUCT USED FOR UNKNOWN INDICATION
     Route: 048
     Dates: start: 20150218, end: 20150222
  10. LASILIX SPECIAL [Suspect]
     Active Substance: FUROSEMIDE
     Route: 042
  11. PARACETAMOL [Suspect]
     Active Substance: ACETAMINOPHEN
     Route: 042
     Dates: start: 20150220, end: 20150221
  12. CELLCEPT [Suspect]
     Active Substance: MYCOPHENOLATE MOFETIL\MYCOPHENOLATE MOFETIL HYDROCHLORIDE
     Indication: PROPHYLAXIS
     Route: 065
     Dates: start: 20150216, end: 20150301
  13. CORTANCYL [Suspect]
     Active Substance: PREDNISONE
     Indication: KIDNEY TRANSPLANT REJECTION
  14. TRIATEC (FRANCE) [Concomitant]
     Active Substance: RAMIPRIL
     Route: 065
  15. ACEBUTOLOL [Suspect]
     Active Substance: ACEBUTOLOL
     Indication: HYPERTENSION
     Route: 048
     Dates: start: 20150220, end: 20150220
  16. CORTANCYL [Suspect]
     Active Substance: PREDNISONE
     Indication: PROPHYLAXIS
     Route: 048
     Dates: start: 20150220, end: 20150222
  17. FUROSEMIDE RENAUDIN [Suspect]
     Active Substance: FUROSEMIDE
     Indication: CHRONIC KIDNEY DISEASE
     Route: 042
     Dates: start: 20150218, end: 20150221
  18. INEXIUM [Suspect]
     Active Substance: ESOMEPRAZOLE
     Indication: PROPHYLAXIS
  19. KARDEGIC [Concomitant]
     Active Substance: ASPIRIN LYSINE
     Route: 065
  20. TAHOR [Concomitant]
     Active Substance: ATORVASTATIN CALCIUM
     Route: 065
  21. LOXEN (FRANCE) [Concomitant]
     Active Substance: NICARDIPINE HYDROCHLORIDE
     Route: 065
  22. ROVALCYTE [Suspect]
     Active Substance: VALGANCICLOVIR HYDROCHLORIDE
     Indication: PRODUCT USED FOR UNKNOWN INDICATION
     Route: 048
     Dates: start: 20150220, end: 20150220
  23. ANTILYMPHOCYTE GLOBULIN [Suspect]
     Active Substance: THYMOCYTE IMMUNE GLOBULIN NOS
     Indication: PROPHYLAXIS
     Dosage: DAILY DOSE: ACCORDING TO THE PROTOCOLE
     Route: 048
     Dates: start: 20150215, end: 20150219
  24. ANTILYMPHOCYTE GLOBULIN [Suspect]
     Active Substance: THYMOCYTE IMMUNE GLOBULIN NOS
     Indication: KIDNEY TRANSPLANT REJECTION

REACTIONS (1)
  - Cardiogenic shock [Fatal]

NARRATIVE: CASE EVENT DATE: 20150220
